FAERS Safety Report 8830621 (Version 2)
Quarter: 2012Q4

REPORT INFORMATION
  Report Type: Spontaneous
  Country: US (occurrence: None)
  Receive Date: 20121005
  Receipt Date: 20121031
  Transmission Date: 20130627
  Serious: Yes (Hospitalization, Other)
  Sender: FDA-Public Use
  Company Number: ALK-2012-000926

PATIENT
  Age: 36 Year
  Sex: Male
  Weight: 86 kg

DRUGS (2)
  1. VIVITROL [Suspect]
     Indication: ALCOHOLISM
     Route: 030
     Dates: start: 2011, end: 20120921
  2. XANAX (ALPRAZOLAM) [Concomitant]

REACTIONS (7)
  - Acute respiratory failure [None]
  - Abdominal distension [None]
  - Fatigue [None]
  - Acute respiratory distress syndrome [None]
  - Lung infiltration [None]
  - Viral infection [None]
  - Hypersensitivity [None]
